FAERS Safety Report 8275135-6 (Version None)
Quarter: 2012Q2

REPORT INFORMATION
  Report Type: 
  Country: None (occurrence: None)
  Receive Date: 20120411
  Receipt Date: 20120402
  Transmission Date: 20120825
  Serious: Yes (Other)
  Sender: FDA-Public Use
  Company Number: FR-GILEAD-2012-0053093

PATIENT
  Sex: Male

DRUGS (15)
  1. MORPHINE SULFATE [Concomitant]
     Dosage: UNK
  2. SULFARLEM [Concomitant]
  3. SPASMAG                            /00167401/ [Concomitant]
  4. CALCIUM CARBONATE [Concomitant]
     Dosage: UNK
     Dates: start: 20111225
  5. KALETRA [Concomitant]
     Dosage: UNK
     Dates: start: 20060620, end: 20110708
  6. NEXIUM [Concomitant]
  7. CREON [Concomitant]
     Dosage: UNK
     Dates: start: 20090901
  8. TRUVADA [Concomitant]
     Indication: HIV INFECTION
     Dosage: UNK
     Dates: start: 20071001, end: 20110701
  9. ALENDRONATE SODIUM [Concomitant]
     Dosage: UNK
     Dates: start: 20110601
  10. ATRIPLA [Suspect]
     Indication: HIV INFECTION
     Dosage: UNK
     Dates: start: 20110708
  11. CLONAZEPAM [Concomitant]
  12. COMBIVIR [Suspect]
     Indication: HIV INFECTION
     Dosage: UNK
     Route: 048
     Dates: start: 20060620, end: 20071001
  13. TRAMADOL HCL [Concomitant]
  14. OXAZEPAM [Concomitant]
     Dosage: UNK
     Dates: start: 20111001
  15. PRAVASTATIN [Concomitant]
     Dosage: 20 MG, UNK
     Dates: start: 20111001

REACTIONS (2)
  - HEPATIC CIRRHOSIS [None]
  - FATTY LIVER ALCOHOLIC [None]
